FAERS Safety Report 17821246 (Version 1)
Quarter: 2020Q2

REPORT INFORMATION
  Report Type: Spontaneous
  Country: KR (occurrence: KR)
  Receive Date: 20200525
  Receipt Date: 20200525
  Transmission Date: 20200714
  Serious: Yes (Other)
  Sender: FDA-Public Use
  Company Number: KR-MACLEODS PHARMACEUTICALS US LTD-MAC2020026580

PATIENT

DRUGS (4)
  1. RIVASTIGMINE. [Suspect]
     Active Substance: RIVASTIGMINE
     Indication: DEMENTIA ALZHEIMER^S TYPE
     Dosage: 3 MILLIGRAM
     Route: 065
  2. DONEPEZIL. [Suspect]
     Active Substance: DONEPEZIL
     Indication: DEMENTIA ALZHEIMER^S TYPE
     Dosage: 5 MILLIGRAM, QD
     Route: 065
  3. RISPERIDONE. [Suspect]
     Active Substance: RISPERIDONE
     Indication: DEMENTIA ALZHEIMER^S TYPE
     Dosage: 0.5 MILLIGRAM, BID
     Route: 065
  4. RIVASTIGMINE. [Suspect]
     Active Substance: RIVASTIGMINE
     Dosage: 9 MILLIGRAM
     Route: 065

REACTIONS (1)
  - Pleurothotonus [Recovered/Resolved]
